FAERS Safety Report 5026945-X (Version None)
Quarter: 2006Q2

REPORT INFORMATION
  Report Type: 
  Country: None (occurrence: None)
  Receive Date: 20060609
  Receipt Date: 20060601
  Transmission Date: 20061013
  Serious: Yes (Other)
  Sender: FDA-Public Use
  Company Number: 2006002314

PATIENT
  Age: 43 Year
  Sex: Male

DRUGS (11)
  1. LYRICA [Suspect]
     Indication: NEURALGIA
     Dosage: 150 MG (75, 2 IN 1 D), ORAL
     Route: 048
     Dates: start: 20051027, end: 20051105
  2. AMITRIPTYLINE HCL [Concomitant]
  3. ROBAXIN [Concomitant]
  4. AQUASEPT (TRICLOSAN) [Concomitant]
  5. ACETAMINOPHEN [Concomitant]
  6. RANITIDINE HYDROCHLORIDE [Concomitant]
  7. DIHYDROCODEINE (DIHYDROCODEINE) [Concomitant]
  8. DHC CONTINUS (DIHYDROCODEINE BITARTRATE) [Concomitant]
  9. CELECOXIB (CELECOXIB) [Concomitant]
  10. SILDENAFIL CITRATE [Concomitant]
  11. DIAZEPAM [Concomitant]

REACTIONS (5)
  - CONFUSIONAL STATE [None]
  - DISORIENTATION [None]
  - DIZZINESS [None]
  - SOMNOLENCE [None]
  - VISION BLURRED [None]
